FAERS Safety Report 16134108 (Version 6)
Quarter: 2020Q1

REPORT INFORMATION
  Report Type: Report from Study
  Country: None (occurrence: PL)
  Receive Date: 20190329
  Receipt Date: 20200313
  Transmission Date: 20200409
  Serious: Yes (Death, Life-Threatening, Hospitalization, Disabling, Other)
  Sender: FDA-Public Use
  Company Number: PL-ABBVIE-19P-129-2723804-00

PATIENT
  Age: 59 Year
  Sex: Male

DRUGS (1)
  1. MAVIRET [Suspect]
     Active Substance: GLECAPREVIR\PIBRENTASVIR
     Indication: CHRONIC HEPATITIS C
     Route: 048
     Dates: start: 20181113, end: 20190205

REACTIONS (2)
  - Prostate cancer metastatic [Recovered/Resolved]
  - Bone cancer [Fatal]

NARRATIVE: CASE EVENT DATE: 20190129
